FAERS Safety Report 9511322 (Version 1)
Quarter: 2013Q3

REPORT INFORMATION
  Report Type: Spontaneous
  Country: US (occurrence: None)
  Receive Date: 20130909
  Receipt Date: 20130909
  Transmission Date: 20140515
  Serious: No
  Sender: FDA-Public Use
  Company Number: None

PATIENT
  Age: 70 Year
  Sex: Male
  Weight: 70.31 kg

DRUGS (1)
  1. CREST PRO-HEALTH [Suspect]
     Indication: DENTAL DISORDER PROPHYLAXIS

REACTIONS (1)
  - Oral disorder [None]
